FAERS Safety Report 13678406 (Version 1)
Quarter: 2017Q2

REPORT INFORMATION
  Report Type: Spontaneous
  Country: US (occurrence: US)
  Receive Date: 20170621
  Receipt Date: 20170621
  Transmission Date: 20170830
  Serious: Yes (Disabling)
  Sender: FDA-Public Use
  Company Number: None

PATIENT
  Age: 54 Year
  Sex: Female
  Weight: 54 kg

DRUGS (3)
  1. ZYPREXA [Suspect]
     Active Substance: OLANZAPINE
     Indication: PRODUCT USED FOR UNKNOWN INDICATION
  2. MULTIPLE VITAMIN [Concomitant]
     Active Substance: VITAMINS
  3. KLONOPIN [Suspect]
     Active Substance: CLONAZEPAM
     Indication: ANXIETY
     Dates: start: 20071130, end: 20161120

REACTIONS (16)
  - Lower limb fracture [None]
  - Apathy [None]
  - Constipation [None]
  - Confusional state [None]
  - Anxiety [None]
  - Loss of libido [None]
  - Stupor [None]
  - Contusion [None]
  - Decreased interest [None]
  - Clumsiness [None]
  - Amnesia [None]
  - Feeling abnormal [None]
  - Weight increased [None]
  - Gingival bleeding [None]
  - Drooling [None]
  - Depression [None]

NARRATIVE: CASE EVENT DATE: 20161202
